FAERS Safety Report 10539955 (Version 1)
Quarter: 2014Q4

REPORT INFORMATION
  Report Type: Spontaneous
  Country: US (occurrence: None)
  Receive Date: 20141023
  Receipt Date: 20141023
  Transmission Date: 20150529
  Serious: Yes (Death)
  Sender: FDA-Public Use
  Company Number: None

PATIENT
  Age: 63 Year
  Sex: Male
  Weight: 113.4 kg

DRUGS (3)
  1. ANDRODERM [Suspect]
     Active Substance: TESTOSTERONE
     Indication: ASTHENIA
     Dosage: APPLIED TO A SURFACE , USUALLY THE SKIN, 1 PATCH
  2. ANDRODERM [Suspect]
     Active Substance: TESTOSTERONE
     Indication: BLOOD TESTOSTERONE DECREASED
     Dosage: APPLIED TO A SURFACE , USUALLY THE SKIN, 1 PATCH
  3. ANDRODERM [Suspect]
     Active Substance: TESTOSTERONE
     Indication: AFFECTIVE DISORDER
     Dosage: APPLIED TO A SURFACE , USUALLY THE SKIN, 1 PATCH

REACTIONS (2)
  - Sudden cardiac death [None]
  - Myocardial infarction [None]

NARRATIVE: CASE EVENT DATE: 20140522
